FAERS Safety Report 19980977 (Version 2)
Quarter: 2021Q4

REPORT INFORMATION
  Report Type: Spontaneous
  Country: US (occurrence: US)
  Receive Date: 20211021
  Receipt Date: 20211108
  Transmission Date: 20220303
  Serious: No
  Sender: FDA-Public Use
  Company Number: US-PFIZER INC-202100945023

PATIENT
  Age: 48 Year
  Sex: Female
  Weight: 88.435 kg

DRUGS (1)
  1. XELJANZ [Suspect]
     Active Substance: TOFACITINIB CITRATE
     Indication: Rheumatoid arthritis
     Dosage: 5 MG (FREQUENCY UNKNOWN)
     Route: 048
     Dates: end: 2021

REACTIONS (1)
  - Pain [Unknown]
